FAERS Safety Report 16590385 (Version 1)
Quarter: 2019Q3

REPORT INFORMATION
  Report Type: Spontaneous
  Country: US (occurrence: US)
  Receive Date: 20190717
  Receipt Date: 20190717
  Transmission Date: 20191004
  Serious: Yes (Hospitalization, Other)
  Sender: FDA-Public Use
  Company Number: None

PATIENT
  Age: 43 Year
  Sex: Female
  Weight: 72 kg

DRUGS (1)
  1. BARICITINIB [Suspect]
     Active Substance: BARICITINIB
     Indication: RHEUMATOID ARTHRITIS
     Route: 048
     Dates: start: 20190520, end: 20190610

REACTIONS (5)
  - Myalgia [None]
  - Pain in extremity [None]
  - Ecchymosis [None]
  - Panniculitis [None]
  - Muscle spasms [None]

NARRATIVE: CASE EVENT DATE: 20190607
